FAERS Safety Report 17596071 (Version 1)
Quarter: 2020Q1

REPORT INFORMATION
  Report Type: Spontaneous
  Country: MX (occurrence: MX)
  Receive Date: 20200330
  Receipt Date: 20200330
  Transmission Date: 20200409
  Serious: Yes (Other)
  Sender: FDA-Public Use
  Company Number: MX-ALVOGEN-2020-ALVOGEN-107950

PATIENT
  Age: 64 Year
  Sex: Female
  Weight: 64 kg

DRUGS (3)
  1. ATACAND [Suspect]
     Active Substance: CANDESARTAN CILEXETIL
     Indication: HYPERTENSION
     Route: 048
  2. HYDROCHLOROTHIAZIDE AND LISINOPRIL [Suspect]
     Active Substance: HYDROCHLOROTHIAZIDE\LISINOPRIL
     Indication: HYPERTENSION
     Route: 048
  3. ATACAND [Suspect]
     Active Substance: CANDESARTAN CILEXETIL
     Indication: HYPERTENSION
     Dosage: 1 TABLET PER DAY BY HER OWN DECISION AND, DEPENDING ON HER BLOOD PRESSURE, SHE TAKES THE OTHER TA...
     Route: 048

REACTIONS (7)
  - Rash macular [Unknown]
  - Thrombosis [Unknown]
  - Hypertensive crisis [Unknown]
  - Drug hypersensitivity [Unknown]
  - Cough [Unknown]
  - Oropharyngeal discomfort [Unknown]
  - Intentional product misuse [Unknown]

NARRATIVE: CASE EVENT DATE: 2018
